FAERS Safety Report 25936063 (Version 1)
Quarter: 2025Q4

REPORT INFORMATION
  Report Type: Spontaneous
  Country: US (occurrence: US)
  Receive Date: 20251017
  Receipt Date: 20251017
  Transmission Date: 20260119
  Serious: No
  Sender: SANOFI AVENTIS
  Company Number: US-SA-2025SA310178

PATIENT
  Age: 53 Year
  Sex: Female

DRUGS (4)
  1. LANTUS [Suspect]
     Active Substance: INSULIN GLARGINE
     Indication: Hypothyroidism
     Dosage: 10 IU, QD
     Route: 058
  2. LANTUS [Suspect]
     Active Substance: INSULIN GLARGINE
     Indication: Anaemia
  3. LANTUS [Suspect]
     Active Substance: INSULIN GLARGINE
     Indication: Essential hypertension
  4. LANTUS [Suspect]
     Active Substance: INSULIN GLARGINE
     Indication: Iodine deficiency

REACTIONS (1)
  - Off label use [Unknown]
